FAERS Safety Report 7878883-2 (Version None)
Quarter: 2011Q4

REPORT INFORMATION
  Report Type: 
  Country: None (occurrence: None)
  Receive Date: 20111024
  Receipt Date: 20110726
  Transmission Date: 20120403
  Serious: Yes (Other)
  Sender: FDA-Public Use
  Company Number: AMAG201100168

PATIENT
  Sex: Female

DRUGS (1)
  1. FERAHEME [Suspect]
     Dosage: INTRAVENOUS
     Route: 042
     Dates: start: 20110726, end: 20110726

REACTIONS (5)
  - ANAPHYLACTIC REACTION [None]
  - PHARYNGEAL OEDEMA [None]
  - ANXIETY [None]
  - EYE SWELLING [None]
  - RASH [None]
